FAERS Safety Report 8473329-8 (Version None)
Quarter: 2012Q2

REPORT INFORMATION
  Report Type: 
  Country: None (occurrence: None)
  Receive Date: 20120628
  Receipt Date: 20120619
  Transmission Date: 20120825
  Serious: No
  Sender: FDA-Public Use
  Company Number: US-B.I. PHARMACEUTICALS,INC./RIDGEFIELD-2012-BP-11422BP

PATIENT
  Sex: Female
  Weight: 76.2 kg

DRUGS (2)
  1. PRADAXA [Suspect]
  2. PRADAXA [Suspect]
     Indication: ATRIAL FIBRILLATION
     Dosage: 300 MG
     Dates: start: 20120401

REACTIONS (3)
  - WOUND [None]
  - TONGUE HAEMORRHAGE [None]
  - MOUTH HAEMORRHAGE [None]
